FAERS Safety Report 8929933 (Version 1)
Quarter: 2012Q4

REPORT INFORMATION
  Report Type: 
  Country: FR (occurrence: FR)
  Receive Date: 20121128
  Receipt Date: 20121128
  Transmission Date: 20130627
  Serious: Yes (Hospitalization)
  Sender: FDA-Public Use
  Company Number: PHHY2012FR107624

PATIENT
  Age: 69 Year
  Sex: Female

DRUGS (3)
  1. EUCREAS [Suspect]
     Dosage: 50 mg, BID
     Route: 048
     Dates: end: 20120719
  2. ALLOPURINOL [Suspect]
     Dosage: QD
     Route: 048
     Dates: end: 20120719
  3. BURINEX [Concomitant]
     Dosage: 5 mg, QD

REACTIONS (5)
  - Pemphigoid [Recovered/Resolved]
  - Dermatitis bullous [Unknown]
  - Capillaritis [Unknown]
  - Eosinophilia [Unknown]
  - Pruritus [Unknown]
